FAERS Safety Report 13062074 (Version 1)
Quarter: 2016Q4

REPORT INFORMATION
  Report Type: Spontaneous
  Country: US (occurrence: US)
  Receive Date: 20161226
  Receipt Date: 20161226
  Transmission Date: 20170207
  Serious: No
  Sender: FDA-Public Use
  Company Number: US-009507513-1612USA005015

PATIENT
  Age: 40 Year
  Sex: Female

DRUGS (3)
  1. BELSOMRA [Suspect]
     Active Substance: SUVOREXANT
     Dosage: SPLIT THE 10MG DOSE
     Route: 048
     Dates: start: 201612
  2. PROAIR HFA [Concomitant]
     Active Substance: ALBUTEROL SULFATE
  3. BELSOMRA [Suspect]
     Active Substance: SUVOREXANT
     Indication: INSOMNIA
     Dosage: 10 MG, UNK
     Route: 048
     Dates: start: 20161203, end: 201612

REACTIONS (3)
  - Wrong technique in product usage process [Unknown]
  - Intentional underdose [Unknown]
  - Headache [Recovered/Resolved]

NARRATIVE: CASE EVENT DATE: 201612
